FAERS Safety Report 24907777 (Version 2)
Quarter: 2025Q1

REPORT INFORMATION
  Report Type: Report from Study
  Country: IL (occurrence: IL)
  Receive Date: 20250131
  Receipt Date: 20250203
  Transmission Date: 20250409
  Serious: No
  Sender: ROCHE
  Company Number: IL-ROCHE-10000193302

PATIENT
  Age: 65 Year
  Sex: Male

DRUGS (1)
  1. OCREVUS [Suspect]
     Active Substance: OCRELIZUMAB
     Indication: Relapsing multiple sclerosis
     Route: 040
     Dates: start: 20181009

REACTIONS (2)
  - Influenza [Recovered/Resolved]
  - Sinusitis [Recovering/Resolving]

NARRATIVE: CASE EVENT DATE: 20250126
